FAERS Safety Report 20445982 (Version 2)
Quarter: 2022Q1

REPORT INFORMATION
  Report Type: Spontaneous
  Country: HU (occurrence: HU)
  Receive Date: 20220208
  Receipt Date: 20220222
  Transmission Date: 20220423
  Serious: Yes (Death, Life-Threatening, Other)
  Sender: FDA-Public Use
  Company Number: HU-OCTA-LIT00522HU

PATIENT
  Sex: Male

DRUGS (1)
  1. EMOCLOT [Suspect]
     Active Substance: ANTIHEMOPHILIC FACTOR HUMAN
     Indication: Haemorrhage intracranial
     Dosage: UNK
     Route: 065

REACTIONS (3)
  - Haemorrhage intracranial [Fatal]
  - Retroperitoneal haemorrhage [Recovered/Resolved]
  - Anti factor VIII antibody positive [Recovered/Resolved]
